FAERS Safety Report 16209092 (Version 2)
Quarter: 2019Q2

REPORT INFORMATION
  Report Type: Spontaneous
  Country: DE (occurrence: DE)
  Receive Date: 20190417
  Receipt Date: 20190422
  Transmission Date: 20190711
  Serious: Yes (Hospitalization)
  Sender: FDA-Public Use
  Company Number: PHHY2019DE086770

PATIENT
  Age: 60 Year
  Sex: Female

DRUGS (1)
  1. INTERFERON BETA-1B [Suspect]
     Active Substance: INTERFERON BETA-1B
     Indication: MULTIPLE SCLEROSIS
     Dosage: 250 UG, QOD
     Route: 058
     Dates: start: 20080101

REACTIONS (2)
  - Hypertension [Not Recovered/Not Resolved]
  - Retinal vascular occlusion [Recovered/Resolved]

NARRATIVE: CASE EVENT DATE: 20190405
